FAERS Safety Report 8591254-9 (Version None)
Quarter: 2012Q3

REPORT INFORMATION
  Report Type: 
  Country: None (occurrence: None)
  Receive Date: 20120813
  Receipt Date: 20120803
  Transmission Date: 20120928
  Serious: Yes (Hospitalization)
  Sender: FDA-Public Use
  Company Number: CL-AMGEN-CHLSP2012050057

PATIENT
  Age: 35 Year
  Sex: Female
  Weight: 64.7 kg

DRUGS (3)
  1. CYTARABINE [Concomitant]
     Indication: NON-HODGKIN'S LYMPHOMA
     Dosage: 516 MG/M2, UNK
     Dates: start: 20120726
  2. NEUPOGEN [Suspect]
     Indication: BONE MARROW TRANSPLANT
     Dosage: UNK UNK, QD
     Route: 058
     Dates: start: 20120704, end: 20120711
  3. ETOPOSIDE [Concomitant]
     Indication: NON-HODGKIN'S LYMPHOMA
     Dosage: 258 MG/M2, UNK
     Dates: start: 20120626

REACTIONS (1)
  - CAPILLARY LEAK SYNDROME [None]
